FAERS Safety Report 22209235 (Version 2)
Quarter: 2023Q2

REPORT INFORMATION
  Report Type: Spontaneous
  Country: US (occurrence: US)
  Receive Date: 20230413
  Receipt Date: 20230418
  Transmission Date: 20230722
  Serious: No
  Sender: FDA-Public Use
  Company Number: US-AMGEN-USASP2023063084

PATIENT
  Sex: Female

DRUGS (1)
  1. OTEZLA [Suspect]
     Active Substance: APREMILAST
     Indication: Psoriasis
     Dosage: 10 + 20 + 30 MG
     Route: 048

REACTIONS (2)
  - Psoriasis [Not Recovered/Not Resolved]
  - Therapy non-responder [Not Recovered/Not Resolved]
